FAERS Safety Report 23447522 (Version 5)
Quarter: 2024Q2

REPORT INFORMATION
  Report Type: Report from Study
  Country: FR (occurrence: FR)
  Receive Date: 20240126
  Receipt Date: 20240621
  Transmission Date: 20240716
  Serious: Yes (Hospitalization)
  Sender: FDA-Public Use
  Company Number: FR-Eisai-EC-2023-155756

PATIENT
  Age: 58 Year
  Sex: Female

DRUGS (9)
  1. LENVATINIB [Suspect]
     Active Substance: LENVATINIB
     Indication: Thymic carcinoma
     Route: 048
     Dates: start: 20231204, end: 20231220
  2. PEMBROLIZUMAB [Suspect]
     Active Substance: PEMBROLIZUMAB
     Indication: Thymic carcinoma
     Dosage: FREQUENCY UNKNOWN
     Route: 042
     Dates: start: 20231204, end: 20231204
  3. FLUOXETINE [Concomitant]
     Active Substance: FLUOXETINE HYDROCHLORIDE
     Dates: start: 202302
  4. OLANZAPINE [Concomitant]
     Active Substance: OLANZAPINE
     Dates: start: 202310
  5. ALPRAZOLAM [Concomitant]
     Active Substance: ALPRAZOLAM
     Dates: start: 202302
  6. DOLIPRANE [Concomitant]
     Active Substance: ACETAMINOPHEN
     Dates: start: 202311
  7. MORPHINE SULFATE [Concomitant]
     Active Substance: MORPHINE SULFATE
     Dates: start: 202307
  8. LORAZEPAM [Concomitant]
     Active Substance: LORAZEPAM
     Dates: start: 202302
  9. IBUPROFEN [Concomitant]
     Active Substance: IBUPROFEN
     Dates: start: 202301

REACTIONS (3)
  - Lethargy [Recovered/Resolved]
  - Lung disorder [Recovered/Resolved]
  - Cardiac dysfunction [Recovered/Resolved]

NARRATIVE: CASE EVENT DATE: 20231218
